FAERS Safety Report 15203395 (Version 1)
Quarter: 2018Q3

REPORT INFORMATION
  Report Type: Spontaneous
  Country: JP (occurrence: JP)
  Receive Date: 20180726
  Receipt Date: 20180726
  Transmission Date: 20181010
  Serious: Yes (Death)
  Sender: FDA-Public Use
  Company Number: JP-009507513-1807JPN000683J

PATIENT
  Age: 6 Decade
  Sex: Male

DRUGS (2)
  1. CANCIDAS [Suspect]
     Active Substance: CASPOFUNGIN ACETATE
     Indication: CANDIDA INFECTION
     Dosage: 70 MG, UNK
     Route: 041
     Dates: start: 20180620, end: 20180620
  2. CANCIDAS [Suspect]
     Active Substance: CASPOFUNGIN ACETATE
     Dosage: 50 MG, UNK
     Route: 041
     Dates: start: 20180621, end: 201806

REACTIONS (1)
  - Candida infection [Fatal]

NARRATIVE: CASE EVENT DATE: 201806
